FAERS Safety Report 9440324 (Version 1)
Quarter: 2013Q3

REPORT INFORMATION
  Report Type: Spontaneous
  Country: IT (occurrence: IT)
  Receive Date: 20130805
  Receipt Date: 20130805
  Transmission Date: 20140515
  Serious: Yes (Other)
  Sender: FDA-Public Use
  Company Number: IT-PFIZER INC-2013223717

PATIENT
  Age: 68 Year
  Sex: Male

DRUGS (1)
  1. SUTENT [Suspect]
     Indication: RENAL NEOPLASM
     Dosage: 50 MG, 1X/DAY
     Route: 048
     Dates: start: 20130306

REACTIONS (2)
  - Hyperpyrexia [Recovered/Resolved]
  - Abdominal pain upper [Recovered/Resolved]
